FAERS Safety Report 13753019 (Version 1)
Quarter: 2017Q3

REPORT INFORMATION
  Report Type: Spontaneous
  Country: US (occurrence: US)
  Receive Date: 20170714
  Receipt Date: 20170714
  Transmission Date: 20171127
  Serious: No
  Sender: FDA-Public Use
  Company Number: US-GLAXOSMITHKLINE-US2017GSK108590

PATIENT
  Sex: Male

DRUGS (1)
  1. SEREVENT DISKUS [Suspect]
     Active Substance: SALMETEROL XINAFOATE
     Indication: DYSPNOEA

REACTIONS (4)
  - Ill-defined disorder [Unknown]
  - Intentional product use issue [Unknown]
  - Inability to afford medication [Unknown]
  - Drug dose omission [Unknown]
